FAERS Safety Report 24603834 (Version 1)
Quarter: 2024Q4

REPORT INFORMATION
  Report Type: Spontaneous
  Country: US (occurrence: None)
  Receive Date: 20241110
  Receipt Date: 20241110
  Transmission Date: 20250115
  Serious: No
  Sender: Public
  Company Number: None

PATIENT
  Age: 25 Year
  Sex: Male

DRUGS (3)
  1. PROPRANOLOL [Suspect]
     Active Substance: PROPRANOLOL HYDROCHLORIDE
     Indication: Anxiety
     Dosage: FREQUENCY : AS NEEDED;?
     Route: 048
     Dates: start: 20241105, end: 20241109
  2. WELLBUTRIN [Concomitant]
  3. VALSARTAN [Concomitant]
     Active Substance: VALSARTAN

REACTIONS (2)
  - Dyspepsia [None]
  - Abdominal pain upper [None]
